FAERS Safety Report 12077038 (Version 1)
Quarter: 2016Q1

REPORT INFORMATION
  Report Type: Spontaneous
  Country: US (occurrence: US)
  Receive Date: 20160215
  Receipt Date: 20160215
  Transmission Date: 20160526
  Serious: Yes (Hospitalization, Other)
  Sender: FDA-Public Use
  Company Number: US-ELI_LILLY_AND_COMPANY-US201602001246

PATIENT
  Age: 66 Year
  Sex: Male

DRUGS (3)
  1. LANTUS [Concomitant]
     Active Substance: INSULIN GLARGINE
     Indication: PRODUCT USED FOR UNKNOWN INDICATION
     Dosage: UNK, UNKNOWN
     Route: 065
  2. HUMALOG [Suspect]
     Active Substance: INSULIN LISPRO
     Indication: TYPE 1 DIABETES MELLITUS
     Dosage: UNK UNK, UNKNOWN
     Route: 065
     Dates: start: 1996
  3. HUMALOG [Suspect]
     Active Substance: INSULIN LISPRO
     Indication: TYPE 1 DIABETES MELLITUS
     Dosage: UNK, UNKNOWN
     Route: 065

REACTIONS (25)
  - Visual impairment [Unknown]
  - Impaired gastric emptying [Unknown]
  - Cataract [Unknown]
  - Hypoaesthesia [Unknown]
  - Cardiac failure congestive [Unknown]
  - Macular oedema [Unknown]
  - Cerebrovascular accident [Unknown]
  - Gait disturbance [Unknown]
  - Femur fracture [Unknown]
  - Pneumonia [Unknown]
  - Hypertension [Unknown]
  - Vitreous floaters [Unknown]
  - Weight bearing difficulty [Unknown]
  - Speech disorder [Unknown]
  - Dry eye [Unknown]
  - Staphylococcal infection [Unknown]
  - Migraine [Unknown]
  - Oedema peripheral [Unknown]
  - Mallory-Weiss syndrome [Unknown]
  - Oesophageal rupture [Unknown]
  - Acute kidney injury [Unknown]
  - Fall [Recovered/Resolved]
  - Hip fracture [Unknown]
  - Vomiting [Unknown]
  - Chronic kidney disease [Unknown]

NARRATIVE: CASE EVENT DATE: 2013
